FAERS Safety Report 25188757 (Version 2)
Quarter: 2025Q2

REPORT INFORMATION
  Report Type: Spontaneous
  Country: US (occurrence: US)
  Receive Date: 20250411
  Receipt Date: 20250507
  Transmission Date: 20250716
  Serious: No
  Sender: CSL BEHRING
  Company Number: US-BEH-2025201635

PATIENT
  Age: 78 Year
  Sex: Male

DRUGS (33)
  1. HIZENTRA [Suspect]
     Active Substance: HUMAN IMMUNOGLOBULIN G
     Indication: Immunodeficiency common variable
     Dosage: 16 G, QW
     Route: 058
     Dates: start: 202205
  2. PROLIA [Concomitant]
     Active Substance: DENOSUMAB
     Route: 058
  3. ABIRATERONE ACETATE [Concomitant]
     Active Substance: ABIRATERONE ACETATE
     Dosage: UNK UNK, BID
     Route: 048
  4. ABIRATERONE ACETATE [Concomitant]
     Active Substance: ABIRATERONE ACETATE
     Dosage: 2 DF, QD
     Route: 048
  5. ACETAMINOPHEN [Concomitant]
     Active Substance: ACETAMINOPHEN
  6. PREDNISONE [Concomitant]
     Active Substance: PREDNISONE
     Dosage: 2 DF, BID
  7. DIPHENHYDRAMINE [Concomitant]
     Active Substance: DIPHENHYDRAMINE
     Indication: Hypersensitivity
  8. AIRSUPRA [Concomitant]
     Active Substance: ALBUTEROL SULFATE\BUDESONIDE
     Dosage: 2 INHALATIONS, Q4H
     Route: 055
  9. AZITHROMYCIN [Concomitant]
     Active Substance: AZITHROMYCIN
     Dosage: 1 DF, QD
     Route: 048
  10. BACTRIM [Concomitant]
     Active Substance: SULFAMETHOXAZOLE\TRIMETHOPRIM
     Route: 048
  11. BENADRYL [Concomitant]
     Active Substance: DIPHENHYDRAMINE HYDROCHLORIDE
  12. CALCIUM\CHOLECALCIFEROL [Concomitant]
     Active Substance: CALCIUM\CHOLECALCIFEROL
     Dosage: 1 DF, BID
     Route: 048
  13. CEQUA [Concomitant]
     Active Substance: CYCLOSPORINE
     Dosage: 1 DROP IN EACH EYE, BID
  14. ELIGARD [Concomitant]
     Active Substance: LEUPROLIDE ACETATE
     Indication: Prostate cancer metastatic
  15. EPINEPHRINE [Concomitant]
     Active Substance: EPINEPHRINE
     Indication: Hypersensitivity
  16. FINASTERIDE [Concomitant]
     Active Substance: FINASTERIDE
     Dosage: 1 DF, QD IN THE EVENING
     Route: 048
  17. Herbal laxative [Concomitant]
  18. LEVALBUTEROL [Concomitant]
     Active Substance: LEVALBUTEROL
     Route: 055
  19. LINZESS [Concomitant]
     Active Substance: LINACLOTIDE
     Dosage: 1 DF, QD
     Route: 048
  20. METOPROLOL [Concomitant]
     Active Substance: METOPROLOL
     Dosage: 1 DF, BID
     Route: 048
  21. MUCINEX [Concomitant]
     Active Substance: GUAIFENESIN
     Dosage: UNK, BID
     Route: 048
  22. VITAMINS [Concomitant]
     Active Substance: VITAMINS
     Dosage: 1 DF, QD
     Route: 048
  23. PANTOPRAZOLE [Concomitant]
     Active Substance: PANTOPRAZOLE
     Dosage: 1 DF, QD
     Route: 048
  24. PROCHLORPERAZINE [Concomitant]
     Active Substance: PROCHLORPERAZINE
     Indication: Vomiting
     Route: 048
  25. PROCHLORPERAZINE [Concomitant]
     Active Substance: PROCHLORPERAZINE
     Indication: Nausea
  26. SODIUM CHLORIDE [Concomitant]
     Active Substance: SODIUM CHLORIDE
     Route: 055
  27. TAMSULOSIN [Concomitant]
     Active Substance: TAMSULOSIN
     Dosage: 1 DF, QD IN THE EVENING
     Route: 048
  28. TRELEGY ELLIPTA [Concomitant]
     Active Substance: FLUTICASONE FUROATE\UMECLIDINIUM BROMIDE\VILANTEROL TRIFENATATE
     Route: 055
  29. TYLENOL [Concomitant]
     Active Substance: ACETAMINOPHEN
  30. VITAMIN C [Concomitant]
     Active Substance: ASCORBIC ACID
     Dosage: 1 DF, QD
     Route: 048
  31. WELLBUTRIN XL [Concomitant]
     Active Substance: BUPROPION HYDROCHLORIDE
     Dosage: 1 DF, QD
     Route: 048
  32. XANAX [Concomitant]
     Active Substance: ALPRAZOLAM
     Route: 048
  33. ZINC [Concomitant]
     Active Substance: ZINC
     Dosage: 1 DF, QD
     Route: 048

REACTIONS (1)
  - Chronic obstructive pulmonary disease [Fatal]

NARRATIVE: CASE EVENT DATE: 20250327
